FAERS Safety Report 8211742-4 (Version None)
Quarter: 2012Q1

REPORT INFORMATION
  Report Type: 
  Country: None (occurrence: None)
  Receive Date: 20120315
  Receipt Date: 20120307
  Transmission Date: 20120608
  Serious: Yes (Hospitalization, Other)
  Sender: FDA-Public Use
  Company Number: US-JNJFOC-20100701716

PATIENT
  Age: 85 Year
  Sex: Male
  Weight: 86.18 kg

DRUGS (2)
  1. NUCYNTA [Suspect]
     Indication: PAIN
     Route: 048
     Dates: start: 20090708, end: 20090715
  2. AVINZA [Suspect]
     Indication: PAIN
     Dosage: AM
     Route: 048
     Dates: start: 20090708, end: 20090715

REACTIONS (6)
  - CONFUSIONAL STATE [None]
  - DISORIENTATION [None]
  - MENTAL DISORDER [None]
  - MULTIPLE DRUG OVERDOSE [None]
  - SOMNOLENCE [None]
  - HALLUCINATION [None]
